FAERS Safety Report 5045252-2 (Version None)
Quarter: 2006Q3

REPORT INFORMATION
  Report Type: 
  Country: None (occurrence: None)
  Receive Date: 20060705
  Receipt Date: 20060613
  Transmission Date: 20061208
  Serious: Yes (Death)
  Sender: FDA-Public Use
  Company Number: US200606003717

PATIENT
  Sex: Female

DRUGS (2)
  1. FORTEO [Suspect]
  2. FORTEO PEN (250 MCG/ML) (FORTE PEN 250 MCG/ML (3ML)) PEN, DISPOSABLE [Concomitant]

REACTIONS (1)
  - DEATH [None]
